FAERS Safety Report 4664245-8 (Version None)
Quarter: 2005Q2

REPORT INFORMATION
  Report Type: 
  Country: None (occurrence: None)
  Receive Date: 20050516
  Receipt Date: 20050506
  Transmission Date: 20051028
  Serious: Yes (Disabling, Other)
  Sender: FDA-Public Use
  Company Number: 2005-05-0307

PATIENT
  Age: 45 Year
  Sex: Female

DRUGS (3)
  1. INTRON A [Suspect]
     Indication: METASTATIC MALIGNANT MELANOMA
     Dosage: SEE IMAGE
     Route: 058
     Dates: start: 20011011, end: 20021201
  2. MELANOMA VACCINE [Suspect]
     Indication: METASTATIC MALIGNANT MELANOMA
     Dosage: SEE IMAGE
     Dates: start: 20021201, end: 20031201
  3. MELANOMA VACCINE [Suspect]
     Indication: METASTATIC MALIGNANT MELANOMA
     Dosage: SEE IMAGE
     Dates: start: 20031201, end: 20041201

REACTIONS (3)
  - ASTHENIA [None]
  - CHRONIC FATIGUE SYNDROME [None]
  - HYPOTHYROIDISM [None]
